FAERS Safety Report 16919274 (Version 1)
Quarter: 2019Q4

REPORT INFORMATION
  Report Type: Spontaneous
  Country: US (occurrence: US)
  Receive Date: 20191014
  Receipt Date: 20191014
  Transmission Date: 20200122
  Serious: No
  Sender: FDA-Public Use
  Company Number: None

PATIENT
  Age: 30 Year
  Sex: Female

DRUGS (2)
  1. DURAMORPH [Suspect]
     Active Substance: MORPHINE SULFATE
     Dosage: ?          OTHER FREQUENCY:ONCE;?
     Route: 037
  2. FENTANYL. [Concomitant]
     Active Substance: FENTANYL

REACTIONS (1)
  - Hypothermia [None]

NARRATIVE: CASE EVENT DATE: 20190910
